FAERS Safety Report 4874103-1 (Version None)
Quarter: 2006Q1

REPORT INFORMATION
  Report Type: 
  Country: None (occurrence: None)
  Receive Date: 20060104
  Receipt Date: 20051221
  Transmission Date: 20060701
  Serious: Yes (Other)
  Sender: FDA-Public Use
  Company Number: 2005169910

PATIENT
  Age: 73 Year
  Sex: Male
  Weight: 72.5755 kg

DRUGS (4)
  1. NORVASC [Suspect]
     Indication: HYPERTENSION
     Dosage: 10 MG (5 MG, 2 IN 1 D)/TWO YEARS AGO
  2. VITAMINS (VITAMINS) [Concomitant]
  3. NATTOKINASE (SUTILAINS) [Concomitant]
  4. ETHYLLENEDIAMINETETRAACETIC ACID (EDTA) (EDETATE DISODIUM) [Concomitant]

REACTIONS (5)
  - BLOOD PRESSURE INADEQUATELY CONTROLLED [None]
  - MIDDLE INSOMNIA [None]
  - NERVOUSNESS [None]
  - NIGHTMARE [None]
  - PALPITATIONS [None]
